FAERS Safety Report 6587225-4 (Version None)
Quarter: 2010Q1

REPORT INFORMATION
  Report Type: 
  Country: None (occurrence: None)
  Receive Date: 20100217
  Receipt Date: 20090506
  Transmission Date: 20100710
  Serious: No
  Sender: FDA-Public Use
  Company Number: US-ALLERGAN-0906276US

PATIENT
  Age: 53 Year
  Sex: Female

DRUGS (6)
  1. BOTOX COSMETIC [Suspect]
     Indication: SKIN WRINKLING
     Dosage: 30 UNITS, SINGLE
     Route: 030
     Dates: start: 20090502, end: 20090502
  2. MEDROL [Concomitant]
     Indication: MIGRAINE
     Dates: start: 20090501
  3. TYLENOL W/ CODEINE [Concomitant]
     Indication: MIGRAINE
  4. SINGULAIR [Concomitant]
     Indication: SINUS DISORDER
  5. WELLBUTRIN [Concomitant]
     Indication: DEPRESSION
  6. ESTROGEN [Concomitant]
     Indication: MENOPAUSE

REACTIONS (6)
  - DRY SKIN [None]
  - ERYTHEMA [None]
  - EYELID OEDEMA [None]
  - INJECTION SITE ERYTHEMA [None]
  - INJECTION SITE PRURITUS [None]
  - SWELLING FACE [None]
